FAERS Safety Report 21229135 (Version 1)
Quarter: 2022Q3

REPORT INFORMATION
  Report Type: Spontaneous
  Country: US (occurrence: None)
  Receive Date: 20220818
  Receipt Date: 20220818
  Transmission Date: 20221026
  Serious: Yes (Hospitalization)
  Sender: FDA-Public Use
  Company Number: None

PATIENT
  Age: 91 Year
  Sex: Female

DRUGS (1)
  1. CEPHALEXIN [Suspect]
     Active Substance: CEPHALEXIN
     Indication: Urinary tract infection
     Dosage: FREQUENCY : 3 TIMES A DAY;?
     Route: 048

REACTIONS (18)
  - Rash [None]
  - Purpura [None]
  - Arthralgia [None]
  - Asthenia [None]
  - Hypertension [None]
  - Dry skin [None]
  - Skin exfoliation [None]
  - Acute kidney injury [None]
  - Vasculitis [None]
  - Chronic kidney disease [None]
  - Renal cyst [None]
  - Spinal compression fracture [None]
  - Hypervolaemia [None]
  - Pulmonary oedema [None]
  - Respiratory failure [None]
  - Haemodialysis [None]
  - Haemoglobin decreased [None]
  - Cutaneous vasculitis [None]
